FAERS Safety Report 9725646 (Version 1)
Quarter: 2013Q4

REPORT INFORMATION
  Report Type: Spontaneous
  Country: US (occurrence: None)
  Receive Date: 20131202
  Receipt Date: 20131202
  Transmission Date: 20140711
  Serious: Yes (Disabling, Other)
  Sender: FDA-Public Use
  Company Number: None

PATIENT
  Sex: Female

DRUGS (1)
  1. METHYLPHENIDATE ER [Suspect]
     Indication: ATTENTION DEFICIT/HYPERACTIVITY DISORDER
     Dosage: 1 TABLET
     Route: 048
     Dates: start: 20131125, end: 20131128

REACTIONS (6)
  - Migraine [None]
  - Abdominal discomfort [None]
  - Vomiting [None]
  - Suicidal ideation [None]
  - Drug ineffective [None]
  - Product substitution issue [None]
